FAERS Safety Report 9553047 (Version 4)
Quarter: 2014Q1

REPORT INFORMATION
  Report Type: Report from Study
  Country: JP (occurrence: JP)
  Receive Date: 20130925
  Receipt Date: 20140207
  Transmission Date: 20141002
  Serious: Yes (Death, Life-Threatening)
  Sender: FDA-Public Use
  Company Number: PHHY2013JP106020

PATIENT
  Age: 38 Year
  Sex: Female

DRUGS (4)
  1. FTY 720 [Suspect]
     Indication: MULTIPLE SCLEROSIS
     Dosage: 0.5 MG, QD
     Route: 048
     Dates: start: 20120117, end: 20130919
  2. LENDORMIN [Suspect]
     Indication: INSOMNIA
     Dosage: 0.25 MG, UNK
     Route: 048
  3. NAUZELIN [Concomitant]
     Route: 048
     Dates: start: 20121227
  4. FERROMIA [Concomitant]
     Dosage: 100 MG, UNK
     Route: 048
     Dates: start: 20120726, end: 20121005

REACTIONS (5)
  - Gastric cancer [Fatal]
  - Metastases to peritoneum [Not Recovered/Not Resolved]
  - Metastases to ovary [Not Recovered/Not Resolved]
  - Oesophagitis [Recovered/Resolved]
  - Cough [Recovered/Resolved]
